FAERS Safety Report 25552157 (Version 1)
Quarter: 2025Q3

REPORT INFORMATION
  Report Type: Spontaneous
  Country: CN (occurrence: CN)
  Receive Date: 20250715
  Receipt Date: 20250715
  Transmission Date: 20251021
  Serious: Yes (Other)
  Sender: BEIGENE
  Company Number: CN-BEIGENE-BGN-2025-011086

PATIENT
  Age: 54 Year
  Weight: 578.4 kg

DRUGS (10)
  1. TISLELIZUMAB [Suspect]
     Active Substance: TISLELIZUMAB
     Indication: Pharyngeal cancer
  2. TISLELIZUMAB [Suspect]
     Active Substance: TISLELIZUMAB
     Route: 041
  3. TISLELIZUMAB [Suspect]
     Active Substance: TISLELIZUMAB
     Route: 041
  4. TISLELIZUMAB [Suspect]
     Active Substance: TISLELIZUMAB
  5. PACLITAXEL [Concomitant]
     Active Substance: PACLITAXEL
     Indication: Pharyngeal cancer
     Route: 041
  6. PACLITAXEL [Concomitant]
     Active Substance: PACLITAXEL
  7. CISPLATIN [Concomitant]
     Active Substance: CISPLATIN
     Indication: Pharyngeal cancer
     Route: 041
  8. CISPLATIN [Concomitant]
     Active Substance: CISPLATIN
  9. ERBITUX [Concomitant]
     Active Substance: CETUXIMAB
     Indication: Pharyngeal cancer
  10. ERBITUX [Concomitant]
     Active Substance: CETUXIMAB

REACTIONS (5)
  - Chills [Recovering/Resolving]
  - Pyrexia [Recovering/Resolving]
  - Pruritus [Recovering/Resolving]
  - Blood pressure increased [Recovering/Resolving]
  - Oxygen saturation decreased [Recovering/Resolving]
